FAERS Safety Report 4445089-9 (Version None)
Quarter: 2004Q3

REPORT INFORMATION
  Report Type: 
  Country: None (occurrence: None)
  Receive Date: 20040907
  Receipt Date: 20040820
  Transmission Date: 20050211
  Serious: Yes (Death)
  Sender: FDA-Public Use
  Company Number: L04-ESP-03962-05

PATIENT
  Age: 40 Year
  Sex: Male

DRUGS (4)
  1. CITALOPRAM [Suspect]
  2. MORPHINE [Suspect]
  3. CODEINE [Concomitant]
  4. NORDIAZEPAM (NAORDAZEPAM) [Concomitant]

REACTIONS (1)
  - ACCIDENTAL POISONING [None]
